FAERS Safety Report 16316608 (Version 4)
Quarter: 2019Q2

REPORT INFORMATION
  Report Type: Spontaneous
  Country: US (occurrence: US)
  Receive Date: 20190515
  Receipt Date: 20190619
  Transmission Date: 20190711
  Serious: Yes (Other)
  Sender: FDA-Public Use
  Company Number: US-GILEAD-2019-0407207

PATIENT
  Age: 31 Year
  Sex: Male

DRUGS (1)
  1. EPCLUSA [Suspect]
     Active Substance: SOFOSBUVIR\VELPATASVIR
     Indication: CHRONIC HEPATITIS C
     Dosage: 1 DOSAGE FORM, QD
     Route: 048
     Dates: start: 201905

REACTIONS (8)
  - Fatigue [Not Recovered/Not Resolved]
  - Fall [Unknown]
  - Physical assault [Unknown]
  - Head injury [Unknown]
  - Product dose omission [Recovered/Resolved]
  - Concussion [Unknown]
  - Loss of consciousness [Unknown]
  - Flushing [Unknown]

NARRATIVE: CASE EVENT DATE: 20190509
